FAERS Safety Report 9132391 (Version 2)
Quarter: 2014Q4

REPORT INFORMATION
  Report Type: Spontaneous
  Country: US (occurrence: US)
  Receive Date: 20130301
  Receipt Date: 20141016
  Transmission Date: 20150529
  Serious: Yes (Hospitalization, Other)
  Sender: FDA-Public Use
  Company Number: US-GLAXOSMITHKLINE-A0770960A

PATIENT
  Age: 60 Year
  Sex: Male

DRUGS (2)
  1. ROSIGLITAZONE MALEATE. [Suspect]
     Active Substance: ROSIGLITAZONE MALEATE
     Indication: DIABETES MELLITUS
     Dosage: 8 MG, UNK
     Route: 048
     Dates: start: 20041118, end: 20081001
  2. AVANDIA [Suspect]
     Active Substance: ROSIGLITAZONE MALEATE
     Indication: TYPE 2 DIABETES MELLITUS
     Dosage: 8 MG, QD
     Route: 048
     Dates: start: 20040411, end: 20081201

REACTIONS (2)
  - Acute myocardial infarction [Recovered/Resolved]
  - Coronary artery disease [Unknown]

NARRATIVE: CASE EVENT DATE: 20070714
